FAERS Safety Report 8853459 (Version 3)
Quarter: 2014Q3

REPORT INFORMATION
  Report Type: Spontaneous
  Country: US (occurrence: US)
  Receive Date: 20121022
  Receipt Date: 20140822
  Transmission Date: 20150326
  Serious: Yes (Hospitalization, Other)
  Sender: FDA-Public Use
  Company Number: US-009507513-1210USA005843

PATIENT
  Sex: Female
  Weight: 126.98 kg

DRUGS (2)
  1. NUVARING [Suspect]
     Active Substance: ETHINYL ESTRADIOL\ETONOGESTREL
     Indication: UTERINE LEIOMYOMA
     Dosage: FIRST MONDAY OF EACH MONTH
     Route: 067
     Dates: start: 20070220, end: 20100413
  2. NUVARING [Suspect]
     Active Substance: ETHINYL ESTRADIOL\ETONOGESTREL
     Indication: AMENORRHOEA

REACTIONS (22)
  - Migraine [Unknown]
  - Inappropriate schedule of drug administration [Unknown]
  - Vitamin D deficiency [Unknown]
  - Bone infarction [Unknown]
  - Sinusitis [Unknown]
  - Respiratory disorder [Unknown]
  - Vitamin B12 deficiency [Unknown]
  - Chest pain [Unknown]
  - Retinal haemorrhage [Not Recovered/Not Resolved]
  - Pneumonia [Unknown]
  - Glucose tolerance impaired [Unknown]
  - Tachycardia [Unknown]
  - Off label use [Unknown]
  - Pulmonary embolism [Unknown]
  - Depression [Unknown]
  - Constipation [Unknown]
  - Fibromyalgia [Unknown]
  - Diastolic dysfunction [Unknown]
  - Acute chest syndrome [Unknown]
  - Pain in extremity [Unknown]
  - Abdominal pain [Unknown]
  - Irritable bowel syndrome [Unknown]

NARRATIVE: CASE EVENT DATE: 2007
